FAERS Safety Report 18528062 (Version 1)
Quarter: 2020Q4

REPORT INFORMATION
  Report Type: Spontaneous
  Country: US (occurrence: US)
  Receive Date: 20201120
  Receipt Date: 20201120
  Transmission Date: 20210114
  Serious: No
  Sender: FDA-Public Use
  Company Number: US-UNITED THERAPEUTICS-UNT-2020-018003

PATIENT
  Sex: Female

DRUGS (1)
  1. REMODULIN [Suspect]
     Active Substance: TREPROSTINIL
     Indication: PULMONARY ARTERIAL HYPERTENSION
     Dosage: UNK, CONTINUING
     Route: 058
     Dates: start: 20190701

REACTIONS (6)
  - Infusion site bruising [Unknown]
  - Infusion site swelling [Unknown]
  - Device use issue [Unknown]
  - Device use error [Unknown]
  - Infusion site erythema [Unknown]
  - Infusion site pain [Unknown]
